FAERS Safety Report 18872619 (Version 1)
Quarter: 2021Q1

REPORT INFORMATION
  Report Type: Spontaneous
  Country: GB (occurrence: GB)
  Receive Date: 20210210
  Receipt Date: 20210210
  Transmission Date: 20210420
  Serious: Yes (Other)
  Sender: FDA-Public Use
  Company Number: GB-GLAXOSMITHKLINE-GB2021027329

PATIENT
  Sex: Female

DRUGS (5)
  1. BETMIGA [Suspect]
     Active Substance: MIRABEGRON
     Dosage: 25 MG, QD (25 MG, ONCE DAILY (WITH BREAKFAST))
     Route: 065
     Dates: start: 20210101
  2. LAMICTAL [Suspect]
     Active Substance: LAMOTRIGINE
     Indication: PROPHYLAXIS
     Dosage: UNK UNK, UNKNOWN FREQ.
     Route: 065
     Dates: start: 20200130
  3. BETMIGA [Suspect]
     Active Substance: MIRABEGRON
     Indication: URINARY RETENTION
     Dosage: 50 MG, QD (50 MG, ONCE DAILY (IN THE MORNINGS))
     Route: 065
     Dates: start: 201706, end: 20200111
  4. BETMIGA [Suspect]
     Active Substance: MIRABEGRON
     Dosage: 50 MG, QD (50 MG, ONCE DAILY (IN THE MORNINGS))
     Route: 065
     Dates: start: 20200127
  5. LAMICTAL [Suspect]
     Active Substance: LAMOTRIGINE
     Indication: EPILEPSY

REACTIONS (4)
  - Condition aggravated [Unknown]
  - Multiple sclerosis [Unknown]
  - Nocturia [Unknown]
  - Urinary tract infection [Unknown]

NARRATIVE: CASE EVENT DATE: 2017
